FAERS Safety Report 17171057 (Version 1)
Quarter: 2019Q4

REPORT INFORMATION
  Report Type: Report from Study
  Country: DE (occurrence: DE)
  Receive Date: 20191218
  Receipt Date: 20191218
  Transmission Date: 20200122
  Serious: Yes (Hospitalization, Other)
  Sender: FDA-Public Use
  Company Number: DE-JNJFOC-20191109186

PATIENT
  Age: 29 Year
  Sex: Female
  Weight: 82 kg

DRUGS (4)
  1. L DOPA [Concomitant]
     Active Substance: LEVODOPA
     Indication: ATAXIA
     Route: 048
     Dates: start: 201910
  2. SOLERA [Concomitant]
     Active Substance: CHLORMADINONE ACETATE\ETHINYL ESTRADIOL
     Indication: CONTRACEPTION
     Dates: start: 2014
  3. USTEKINUMAB [Suspect]
     Active Substance: USTEKINUMAB
     Indication: CROHN^S DISEASE
     Route: 058
     Dates: start: 20190403, end: 20191105
  4. USTEKINUMAB [Suspect]
     Active Substance: USTEKINUMAB
     Route: 058
     Dates: start: 20190206, end: 20191016

REACTIONS (2)
  - Exposure during pregnancy [Recovered/Resolved]
  - Abortion missed [Recovered/Resolved]

NARRATIVE: CASE EVENT DATE: 20191101
